FAERS Safety Report 8502957-6 (Version None)
Quarter: 2012Q3

REPORT INFORMATION
  Report Type: 
  Country: None (occurrence: None)
  Receive Date: 20120711
  Receipt Date: 20120709
  Transmission Date: 20120928
  Serious: Yes (Other)
  Sender: FDA-Public Use
  Company Number: DE-B.I. PHARMACEUTICALS,INC./RIDGEFIELD-2012-DE-01536DE

PATIENT
  Sex: Male
  Weight: 80 kg

DRUGS (10)
  1. SIMVASTATIN [Suspect]
     Dosage: 50 ANZ
     Route: 048
     Dates: start: 20120626
  2. LORAZEPAM [Suspect]
     Dosage: 15 ANZ
     Route: 048
     Dates: start: 20120626
  3. RAMIPRIL [Suspect]
     Dosage: 40 ANZ
     Route: 048
     Dates: start: 20120626
  4. NOVALGIN [Suspect]
     Dosage: 20 ANZ
     Route: 048
     Dates: start: 20120626
  5. AMLODIPINE [Suspect]
     Dosage: 5 ANZ
     Route: 048
     Dates: start: 20120626
  6. VALORON [Suspect]
     Dosage: 10 ANZ
     Route: 048
     Dates: start: 20120626
  7. MIRTAZAPINE [Suspect]
     Dosage: 5 ANZ
     Route: 048
     Dates: start: 20120626
  8. AGGRENOX [Suspect]
     Dosage: 5 ANZ
     Route: 048
     Dates: start: 20120626
  9. SEROQUEL [Suspect]
     Dosage: 5 ANZ
     Route: 048
     Dates: start: 20120626
  10. FUROSEMIDE [Suspect]
     Dosage: 5 ANZ
     Route: 048
     Dates: start: 20120626

REACTIONS (3)
  - SUICIDE ATTEMPT [None]
  - FATIGUE [None]
  - SOMNOLENCE [None]
